FAERS Safety Report 8319029-6 (Version None)
Quarter: 2012Q2

REPORT INFORMATION
  Report Type: 
  Country: None (occurrence: None)
  Receive Date: 20120427
  Receipt Date: 20120418
  Transmission Date: 20120825
  Serious: Yes (Hospitalization)
  Sender: FDA-Public Use
  Company Number: JP-ACTELION-A-CH2012-62436

PATIENT
  Sex: Female
  Weight: 37 kg

DRUGS (10)
  1. VERAPAMIL HYDROCHLORIDE [Concomitant]
  2. LANSOPRAZOLE [Concomitant]
  3. ISOSORBIDE MONONITRATE [Concomitant]
  4. DIGOXIN [Concomitant]
  5. ERYTHROMYCIN ETHYLSUCCINATE [Concomitant]
  6. FUROSEMIDE [Concomitant]
  7. SPIRONOLACTONE [Concomitant]
  8. ETODOLAC [Concomitant]
  9. TRACLEER [Suspect]
     Indication: PULMONARY HYPERTENSION
     Dosage: 125 MG, BID
     Route: 048
     Dates: start: 20090611
  10. THEOPHYLLINE [Concomitant]

REACTIONS (6)
  - ALANINE AMINOTRANSFERASE INCREASED [None]
  - WHITE BLOOD CELL COUNT INCREASED [None]
  - RESPIRATORY TRACT INFECTION [None]
  - LIVER FUNCTION TEST ABNORMAL [None]
  - ASPARTATE AMINOTRANSFERASE INCREASED [None]
  - GAMMA-GLUTAMYLTRANSFERASE INCREASED [None]
